FAERS Safety Report 7996127-8 (Version None)
Quarter: 2011Q4

REPORT INFORMATION
  Report Type: 
  Country: None (occurrence: None)
  Receive Date: 20111220
  Receipt Date: 20111213
  Transmission Date: 20120403
  Serious: Yes (Other)
  Sender: FDA-Public Use
  Company Number: PHEH2011US02267

PATIENT
  Sex: Female
  Weight: 47.17 kg

DRUGS (1)
  1. EXJADE [Suspect]
     Indication: SIDEROBLASTIC ANAEMIA
     Dosage: 750 MG, QD
     Route: 048
     Dates: start: 20070801

REACTIONS (3)
  - LUMBAR VERTEBRAL FRACTURE [None]
  - HEAD INJURY [None]
  - UPPER LIMB FRACTURE [None]
